FAERS Safety Report 5054885-9 (Version None)
Quarter: 2006Q3

REPORT INFORMATION
  Report Type: 
  Country: None (occurrence: None)
  Receive Date: 20060717
  Receipt Date: 20060705
  Transmission Date: 20061208
  Serious: Yes (Other)
  Sender: FDA-Public Use
  Company Number: 2006085325

PATIENT
  Age: 56 Year
  Sex: Female
  Weight: 86.1834 kg

DRUGS (8)
  1. LYRICA [Suspect]
     Indication: BACK DISORDER
     Dosage: 150 MG (75 MG, 2 IN 1 D), ORAL
     Route: 048
     Dates: start: 20060704
  2. METFORMIN [Suspect]
     Indication: DIABETES MELLITUS
     Dosage: 1 D
  3. COZAAR [Suspect]
     Indication: PROTEIN URINE
  4. ADVAIR DISKUS 100/50 [Concomitant]
  5. ACCOLATE [Concomitant]
  6. ALBUTEROL [Concomitant]
  7. SYNTHROID [Concomitant]
  8. ZYRTEC [Concomitant]

REACTIONS (4)
  - BLOOD GLUCOSE INCREASED [None]
  - CHEST DISCOMFORT [None]
  - DIZZINESS [None]
  - PROTEIN URINE PRESENT [None]
